FAERS Safety Report 18312239 (Version 1)
Quarter: 2020Q3

REPORT INFORMATION
  Report Type: Spontaneous
  Country: US (occurrence: US)
  Receive Date: 20200925
  Receipt Date: 20200925
  Transmission Date: 20201103
  Serious: No
  Sender: FDA-Public Use
  Company Number: None

PATIENT
  Age: 37 Year
  Sex: Female

DRUGS (7)
  1. PREDNISONE 5MG [Concomitant]
     Active Substance: PREDNISONE
     Dates: start: 20200915
  2. HYDROXYCHLOROQUINE 200MG [Concomitant]
     Active Substance: HYDROXYCHLOROQUINE
     Dates: start: 20190604
  3. METHOTREXATE 25MG/ML [Concomitant]
     Dates: start: 20200915
  4. GABAPENTIN 300MG [Concomitant]
     Active Substance: GABAPENTIN
     Dates: start: 20190604
  5. BENLYSTA [Suspect]
     Active Substance: BELIMUMAB
     Indication: SYSTEMIC LUPUS ERYTHEMATOSUS
     Dosage: ?          OTHER FREQUENCY:WEEKLY;?
     Route: 058
     Dates: start: 20190529
  6. MYCOPHENOLATE 250MG CAPSULES [Concomitant]
     Active Substance: MYCOPHENOLATE MOFETIL
     Dates: start: 20190225
  7. FOLIC ACID 1MG [Concomitant]
     Active Substance: FOLIC ACID
     Dates: start: 20200915

REACTIONS (3)
  - Myalgia [None]
  - Skin ulcer [None]
  - Condition aggravated [None]

NARRATIVE: CASE EVENT DATE: 20200909
